FAERS Safety Report 5293406-2 (Version None)
Quarter: 2007Q2

REPORT INFORMATION
  Report Type: 
  Country: None (occurrence: None)
  Receive Date: 20070411
  Receipt Date: 20070402
  Transmission Date: 20071010
  Serious: Yes (Other)
  Sender: FDA-Public Use
  Company Number: FR-ROCHE-483151

PATIENT
  Age: 53 Year
  Sex: Male
  Weight: 60 kg

DRUGS (11)
  1. PEGASYS [Suspect]
     Indication: HEPATITIS C
     Route: 058
     Dates: start: 20060717, end: 20061215
  2. COPEGUS [Concomitant]
     Indication: HEPATITIS C
     Route: 048
     Dates: start: 20060717, end: 20061215
  3. STABLON [Concomitant]
  4. OGAST [Concomitant]
  5. TELFAST [Concomitant]
  6. SYMBICORT [Concomitant]
  7. ATARAX [Concomitant]
  8. DIFFU K [Concomitant]
  9. SOLUPRED [Concomitant]
  10. BRICANYL [Concomitant]
  11. ATROVENT [Concomitant]

REACTIONS (3)
  - EYE PAIN [None]
  - OPTIC NEUROPATHY [None]
  - VISUAL ACUITY REDUCED [None]
